FAERS Safety Report 9108512 (Version 1)
Quarter: 2013Q1

REPORT INFORMATION
  Report Type: Report from Study
  Country: DE (occurrence: DE)
  Receive Date: 20130222
  Receipt Date: 20130222
  Transmission Date: 20140127
  Serious: Yes (Hospitalization)
  Sender: FDA-Public Use
  Company Number: DE-ABBOTT-13P-062-1054253-00

PATIENT
  Age: 77 Year
  Sex: Male

DRUGS (7)
  1. TRENANTONE [Suspect]
     Indication: PROSTATE CANCER
     Route: 058
     Dates: start: 20120717
  2. ACE INHIBITOR/AT1 ANTAGONIST [Concomitant]
     Indication: PRODUCT USED FOR UNKNOWN INDICATION
  3. ASS [Concomitant]
     Indication: PRODUCT USED FOR UNKNOWN INDICATION
     Route: 065
  4. BETA BLOCKER (BETA BLOCKING AGENTS) [Concomitant]
     Indication: PRODUCT USED FOR UNKNOWN INDICATION
     Route: 065
  5. DIURETICS [Concomitant]
     Indication: PRODUCT USED FOR UNKNOWN INDICATION
     Route: 065
  6. CALCIUM ANTAGONIST (CALCIUM CHANNEL BLOCKERS) [Concomitant]
     Indication: PRODUCT USED FOR UNKNOWN INDICATION
     Route: 065
  7. ANTIANDROGENS [Concomitant]
     Indication: PROSTATE CANCER
     Route: 065
     Dates: end: 2012

REACTIONS (4)
  - Chronic obstructive pulmonary disease [Unknown]
  - Infection [Unknown]
  - Haemoglobin decreased [Unknown]
  - Blood creatinine increased [Unknown]
